FAERS Safety Report 8770794 (Version 1)
Quarter: 2012Q4

REPORT INFORMATION
  Report Type: 
  Country: US (occurrence: US)
  Receive Date: 20120906
  Receipt Date: 20120906
  Transmission Date: 20130627
  Serious: Yes (Hospitalization, Other)
  Sender: FDA-Public Use
  Company Number: US-ASTRAZENECA-2011SE01087

PATIENT
  Age: 18975 Day
  Sex: Female
  Weight: 90.7 kg

DRUGS (22)
  1. SEROQUEL XR [Suspect]
     Indication: BIPOLAR DISORDER
     Route: 048
     Dates: start: 2007
  2. SEROQUEL XR [Suspect]
     Indication: ANXIETY
     Route: 048
     Dates: start: 2007
  3. SEROQUEL XR [Suspect]
     Indication: DEPRESSION
     Route: 048
     Dates: start: 2007
  4. SEROQUEL XR [Suspect]
     Indication: BIPOLAR DISORDER
     Route: 048
     Dates: start: 20101105
  5. SEROQUEL XR [Suspect]
     Indication: ANXIETY
     Route: 048
     Dates: start: 20101105
  6. SEROQUEL XR [Suspect]
     Indication: DEPRESSION
     Route: 048
     Dates: start: 20101105
  7. SEROQUEL XR [Suspect]
     Indication: BIPOLAR DISORDER
     Route: 048
  8. SEROQUEL XR [Suspect]
     Indication: ANXIETY
     Route: 048
  9. SEROQUEL XR [Suspect]
     Indication: DEPRESSION
     Route: 048
  10. SEROQUEL XR [Suspect]
     Indication: BIPOLAR DISORDER
     Dosage: 2 TABLETS AFTERNOON
     Route: 048
  11. SEROQUEL XR [Suspect]
     Indication: ANXIETY
     Dosage: 2 TABLETS AFTERNOON
     Route: 048
  12. SEROQUEL XR [Suspect]
     Indication: DEPRESSION
     Dosage: 2 TABLETS AFTERNOON
     Route: 048
  13. SEROQUEL XR [Suspect]
     Indication: BIPOLAR DISORDER
     Route: 048
  14. SEROQUEL XR [Suspect]
     Indication: ANXIETY
     Route: 048
  15. SEROQUEL XR [Suspect]
     Indication: DEPRESSION
     Route: 048
  16. SEROQUEL XR [Suspect]
     Indication: BIPOLAR DISORDER
     Route: 048
  17. SEROQUEL XR [Suspect]
     Indication: ANXIETY
     Route: 048
  18. SEROQUEL XR [Suspect]
     Indication: DEPRESSION
     Route: 048
  19. CYMBALTA [Concomitant]
     Indication: DEPRESSION
     Route: 048
     Dates: start: 20081209
  20. GEODON [Concomitant]
     Indication: BIPOLAR DISORDER
     Route: 048
     Dates: start: 20100209
  21. WELLBUTRIN [Concomitant]
     Indication: DEPRESSION
     Route: 048
     Dates: start: 20101105
  22. SPIRONOLACTONE [Concomitant]

REACTIONS (6)
  - Adrenal neoplasm [Not Recovered/Not Resolved]
  - Pituitary-dependent Cushing^s syndrome [Unknown]
  - Adrenal disorder [Unknown]
  - Weight increased [Recovering/Resolving]
  - Memory impairment [Unknown]
  - Insomnia [Unknown]
